FAERS Safety Report 4704666-8 (Version None)
Quarter: 2005Q2

REPORT INFORMATION
  Report Type: 
  Country: None (occurrence: None)
  Receive Date: 20050630
  Receipt Date: 20050621
  Transmission Date: 20051028
  Serious: No
  Sender: FDA-Public Use
  Company Number: 2005074040

PATIENT
  Sex: Female

DRUGS (2)
  1. LIPITOR [Suspect]
     Indication: BLOOD CHOLESTEROL INCREASED
     Dosage: ORAL
     Route: 048
  2. ALL OTHER THERAPEUTIC PRODUCTS (ALL OTHER THERAPEUTIC PRODUCTS) [Suspect]
     Indication: NEOPLASM MALIGNANT

REACTIONS (4)
  - BLOOD CHOLESTEROL INCREASED [None]
  - DIARRHOEA [None]
  - DIZZINESS [None]
  - STOMACH DISCOMFORT [None]
